FAERS Safety Report 10089179 (Version 1)
Quarter: 2014Q2

REPORT INFORMATION
  Report Type: Spontaneous
  Country: US (occurrence: None)
  Receive Date: 20140418
  Receipt Date: 20140418
  Transmission Date: 20141212
  Serious: No
  Sender: FDA-Public Use
  Company Number: None

PATIENT
  Age: 48 Year
  Sex: Female
  Weight: 61.24 kg

DRUGS (1)
  1. METRONIDAZOLE [Suspect]
     Indication: LYME DISEASE
     Route: 048
     Dates: start: 20140402, end: 20140404

REACTIONS (3)
  - Neuralgia [None]
  - Myalgia [None]
  - Burning sensation [None]
